FAERS Safety Report 16268327 (Version 1)
Quarter: 2019Q2

REPORT INFORMATION
  Report Type: Spontaneous
  Country: NO (occurrence: NO)
  Receive Date: 20190503
  Receipt Date: 20190503
  Transmission Date: 20190711
  Serious: Yes (Hospitalization)
  Sender: FDA-Public Use
  Company Number: NO-TEVA-2019-NO-1044825

PATIENT
  Sex: Female

DRUGS (1)
  1. LISINOPRIL RATIOPHARM [Suspect]
     Active Substance: LISINOPRIL
     Route: 048

REACTIONS (3)
  - Adverse event [Unknown]
  - Ill-defined disorder [Unknown]
  - Swollen tongue [Unknown]
